FAERS Safety Report 9886127 (Version 3)
Quarter: 2014Q2

REPORT INFORMATION
  Report Type: Spontaneous
  Country: US (occurrence: US)
  Receive Date: 20140210
  Receipt Date: 20140409
  Transmission Date: 20141212
  Serious: Yes (Hospitalization)
  Sender: FDA-Public Use
  Company Number: US-BAXTER-2014BAX005913

PATIENT
  Age: 81 Year
  Sex: Male

DRUGS (2)
  1. DIANEAL LOW CALCIUM [Suspect]
     Indication: RENAL FAILURE CHRONIC
     Route: 033
     Dates: start: 20130426, end: 2014
  2. DIANEAL LOW CALCIUM [Suspect]
     Indication: RENAL FAILURE CHRONIC
     Route: 033
     Dates: start: 20130426, end: 2014

REACTIONS (3)
  - Subdural haematoma [Not Recovered/Not Resolved]
  - Fall [Not Recovered/Not Resolved]
  - Cerebrovascular accident [Not Recovered/Not Resolved]
